FAERS Safety Report 8812625 (Version 2)
Quarter: 2012Q4

REPORT INFORMATION
  Report Type: 
  Country: CO (occurrence: CO)
  Receive Date: 20120927
  Receipt Date: 20121010
  Transmission Date: 20130627
  Serious: Yes (Death)
  Sender: FDA-Public Use
  Company Number: PHHY2012CO084126

PATIENT
  Age: 55 Year
  Sex: Male

DRUGS (1)
  1. CERTICAN [Suspect]
     Indication: PROPHYLAXIS AGAINST TRANSPLANT REJECTION
     Dosage: 2 DF, (0.75mg) daily, two daily
     Route: 048
     Dates: start: 20110407

REACTIONS (1)
  - Death [Fatal]
